FAERS Safety Report 9549224 (Version 1)
Quarter: 2013Q2

REPORT INFORMATION
  Report Type: Spontaneous
  Country: US (occurrence: None)
  Receive Date: 20130617
  Receipt Date: 20130617
  Transmission Date: 20140414
  Serious: Yes (Hospitalization)
  Sender: FDA-Public Use
  Company Number: 1547612

PATIENT
  Age: 60 Year
  Sex: 0

DRUGS (4)
  1. VINCRISTINE SULFATE [Suspect]
     Indication: CHEMOTHERAPY
     Dates: start: 20100818
  2. RITUXAN [Concomitant]
  3. CYTOXAN [Suspect]
  4. MESNA [Concomitant]

REACTIONS (1)
  - Ileus [None]
